FAERS Safety Report 12635114 (Version 4)
Quarter: 2016Q3

REPORT INFORMATION
  Report Type: Spontaneous
  Country: JP (occurrence: JP)
  Receive Date: 20160809
  Receipt Date: 20160929
  Transmission Date: 20161109
  Serious: Yes (Death, Hospitalization)
  Sender: FDA-Public Use
  Company Number: JP-FERRINGPH-2016FE03693

PATIENT

DRUGS (13)
  1. PREDONINE [Concomitant]
     Active Substance: PREDNISOLONE\PREDNISOLONE ACETATE\PREDNISOLONE SODIUM SUCCINATE
     Dosage: UNK
     Route: 048
     Dates: start: 20150903, end: 20160627
  2. DENOTAS [Concomitant]
     Active Substance: CALCIUM CARBONATE\CHOLECALCIFEROL\MAGNESIUM CARBONATE
     Dosage: UNK
     Route: 048
     Dates: start: 20151105, end: 20160627
  3. TRANSAMIN [Concomitant]
     Active Substance: TRANEXAMIC ACID
     Dosage: UNK
     Dates: start: 20160616, end: 20160623
  4. LOXONIN [Concomitant]
     Active Substance: LOXOPROFEN SODIUM
     Dosage: UNK
     Dates: start: 20150903, end: 20160623
  5. URSO [Concomitant]
     Active Substance: URSODIOL
     Indication: HEPATIC FUNCTION ABNORMAL
     Dosage: 0.5 DF, 3 TIMES DAILY
     Dates: start: 20160623, end: 20160707
  6. MUCOSTA [Concomitant]
     Active Substance: REBAMIPIDE
     Dosage: UNK
     Dates: start: 20150903, end: 20160623
  7. ADONA                              /00056903/ [Concomitant]
     Active Substance: CARBAZOCHROME SODIUM SULFONATE
     Dosage: UNK
     Dates: start: 20160616, end: 20160623
  8. ZYTIGA [Concomitant]
     Active Substance: ABIRATERONE ACETATE
  9. GONAX [Suspect]
     Active Substance: DEGARELIX
     Indication: PROSTATE CANCER
     Dosage: 240 MG, ONCE/SINGLE
     Route: 058
     Dates: start: 20160609, end: 20160609
  10. XTANDI [Suspect]
     Active Substance: ENZALUTAMIDE
     Indication: HORMONE-REFRACTORY PROSTATE CANCER
     Dosage: 160 MG, 1 TIME DAILY
     Route: 048
     Dates: start: 20160512, end: 20160627
  11. SAWACILLIN [Suspect]
     Active Substance: AMOXICILLIN
     Indication: CYSTITIS
     Dosage: 1 DF, 3 TIMES DAILY
     Route: 048
     Dates: start: 20160609, end: 20160623
  12. CRAVIT [Suspect]
     Active Substance: LEVOFLOXACIN
     Indication: CYSTITIS
     Dosage: 1 DF, 1 TIME DAILY
     Route: 048
     Dates: start: 20160526, end: 20160603
  13. RANMARK [Concomitant]
     Active Substance: DENOSUMAB
     Dosage: UNK
     Dates: start: 20130418, end: 20160609

REACTIONS (7)
  - Hepatitis acute [Fatal]
  - Pneumonia [Fatal]
  - Drug-induced liver injury [Fatal]
  - Gastroenteritis eosinophilic [Unknown]
  - Decreased appetite [Unknown]
  - Dehydration [Recovering/Resolving]
  - Cystitis haemorrhagic [Unknown]

NARRATIVE: CASE EVENT DATE: 2016
